FAERS Safety Report 8130352-0 (Version None)
Quarter: 2012Q1

REPORT INFORMATION
  Report Type: 
  Country: None (occurrence: None)
  Receive Date: 20120210
  Receipt Date: 20120206
  Transmission Date: 20120608
  Serious: Yes (Hospitalization)
  Sender: FDA-Public Use
  Company Number: PHHY2012AU010442

PATIENT
  Sex: Male

DRUGS (1)
  1. CLOZARIL [Suspect]
     Dosage: 200 MG, UNK
     Route: 048
     Dates: start: 20000524

REACTIONS (4)
  - MEDICATION ERROR [None]
  - PSYCHOTIC DISORDER [None]
  - DISEASE RECURRENCE [None]
  - TREATMENT NONCOMPLIANCE [None]
